FAERS Safety Report 21975125 (Version 1)
Quarter: 2023Q1

REPORT INFORMATION
  Report Type: Spontaneous
  Country: US (occurrence: US)
  Receive Date: 20230209
  Receipt Date: 20230209
  Transmission Date: 20230418
  Serious: Yes (Other)
  Sender: FDA-Public Use
  Company Number: US-JNJFOC-20230214321

PATIENT
  Age: 32 Year
  Sex: Female

DRUGS (3)
  1. SPRAVATO [Suspect]
     Active Substance: ESKETAMINE
     Indication: Depression
     Dates: start: 201906
  2. TRANYLCYPROMINE [Concomitant]
     Active Substance: TRANYLCYPROMINE
  3. TRANYLCYPROMINE [Concomitant]
     Active Substance: TRANYLCYPROMINE
     Dates: start: 202011

REACTIONS (1)
  - Suicidal ideation [Not Recovered/Not Resolved]
